FAERS Safety Report 7654671-7 (Version None)
Quarter: 2011Q3

REPORT INFORMATION
  Report Type: 
  Country: None (occurrence: None)
  Receive Date: 20110804
  Receipt Date: 20110726
  Transmission Date: 20111222
  Serious: Yes (Hospitalization, Disabling)
  Sender: FDA-Public Use
  Company Number: US-BIOGENIDEC-2011BI025389

PATIENT
  Age: 70 Year
  Sex: Female
  Weight: 64 kg

DRUGS (25)
  1. MOBIC [Concomitant]
  2. MS CONTIN [Concomitant]
  3. PERCOCET [Concomitant]
  4. PLAVIX [Concomitant]
     Indication: ANTIPLATELET THERAPY
  5. CLOPIDOGREL [Concomitant]
  6. SYNTHROID [Concomitant]
  7. ANEXSIA [Concomitant]
  8. PERCOCET [Concomitant]
  9. ROBAXIN [Concomitant]
     Route: 048
  10. TYSABRI [Suspect]
     Indication: MULTIPLE SCLEROSIS
     Route: 042
     Dates: start: 20090714, end: 20110512
  11. ALLEGRA [Concomitant]
  12. CRESTOR [Concomitant]
     Route: 048
  13. VICODIN [Concomitant]
  14. ZYPREXA [Concomitant]
  15. EFFEXOR [Concomitant]
  16. LORTAB [Concomitant]
  17. SONATA [Concomitant]
  18. VENTOLIN HFA [Concomitant]
  19. XANAX [Concomitant]
     Route: 048
  20. NEXIUM [Concomitant]
  21. VICODIN [Concomitant]
  22. LORTAB [Concomitant]
  23. MS CONTIN [Concomitant]
  24. NAMENDA [Concomitant]
     Route: 048
  25. POTASSIUM CHLORIDE [Concomitant]

REACTIONS (1)
  - MYOCARDIAL INFARCTION [None]
